FAERS Safety Report 8501277-3 (Version None)
Quarter: 2012Q3

REPORT INFORMATION
  Report Type: 
  Country: None (occurrence: None)
  Receive Date: 20120710
  Receipt Date: 20120703
  Transmission Date: 20120928
  Serious: Yes (Hospitalization)
  Sender: FDA-Public Use
  Company Number: GB-ABBOTT-12P-167-0923056-00

PATIENT
  Sex: Female
  Weight: 110 kg

DRUGS (2)
  1. PREDNISOLONE [Concomitant]
     Indication: PRODUCT USED FOR UNKNOWN INDICATION
  2. HUMIRA [Suspect]
     Indication: RHEUMATOID ARTHRITIS
     Route: 058
     Dates: start: 20060926

REACTIONS (7)
  - CEREBROVASCULAR ACCIDENT [None]
  - MALAISE [None]
  - HEADACHE [None]
  - FACIAL PARESIS [None]
  - HYPOTHYROIDISM [None]
  - HYPOAESTHESIA [None]
  - UNEVALUABLE EVENT [None]
